FAERS Safety Report 5645176-3 (Version None)
Quarter: 2008Q1

REPORT INFORMATION
  Report Type: 
  Country: None (occurrence: None)
  Receive Date: 20080229
  Receipt Date: 20080220
  Transmission Date: 20080703
  Serious: Yes (Other)
  Sender: FDA-Public Use
  Company Number: JP-JNJFOC-20080206195

PATIENT
  Age: 61 Year
  Sex: Female

DRUGS (7)
  1. ITRIZOLE [Suspect]
     Indication: ONYCHOMYCOSIS
     Route: 048
  2. BEZAFIBRATE [Concomitant]
     Route: 065
  3. RABEPRAZOLE SODIUM [Concomitant]
     Route: 065
  4. THYROID DRIED [Concomitant]
     Route: 065
  5. ALLOPURINOL AND PREPARATIONS [Concomitant]
     Indication: GOUT
     Route: 065
  6. BENIDIPINE HYDROCHLORIDE [Concomitant]
     Indication: HYPERTENSION
     Route: 065
  7. STOMACH MEDICINE [Concomitant]
     Route: 065

REACTIONS (3)
  - PALPITATIONS [None]
  - RESPIRATORY DISTRESS [None]
  - TACHYCARDIA [None]
